FAERS Safety Report 12432130 (Version 1)
Quarter: 2016Q2

REPORT INFORMATION
  Report Type: Spontaneous
  Country: US (occurrence: None)
  Receive Date: 20160602
  Receipt Date: 20160602
  Transmission Date: 20160815
  Serious: Yes (Disabling)
  Sender: FDA-Public Use
  Company Number: None

PATIENT
  Age: 59 Year
  Sex: Female
  Weight: 136.08 kg

DRUGS (7)
  1. LEVAQUIN [Suspect]
     Active Substance: LEVOFLOXACIN
     Indication: SINUSITIS
     Route: 048
     Dates: start: 20140401, end: 20160406
  2. VALSARTAN. [Concomitant]
     Active Substance: VALSARTAN
  3. FOLIC ACID. [Concomitant]
     Active Substance: FOLIC ACID
  4. IBUPROFEN. [Concomitant]
     Active Substance: IBUPROFEN
  5. TYLENOL [Concomitant]
     Active Substance: ACETAMINOPHEN
  6. FLEXERIL [Concomitant]
     Active Substance: CYCLOBENZAPRINE HYDROCHLORIDE
  7. METHOTREXATE [Concomitant]
     Active Substance: METHOTREXATE

REACTIONS (8)
  - Feeling abnormal [None]
  - Sciatica [None]
  - Restlessness [None]
  - Rheumatoid arthritis [None]
  - Joint swelling [None]
  - Joint stiffness [None]
  - Arthralgia [None]
  - Impaired work ability [None]

NARRATIVE: CASE EVENT DATE: 20150914
